FAERS Safety Report 4783128-6 (Version None)
Quarter: 2005Q3

REPORT INFORMATION
  Report Type: 
  Country: None (occurrence: None)
  Receive Date: 20050914
  Receipt Date: 20040831
  Transmission Date: 20060218
  Serious: Yes (Hospitalization, Other)
  Sender: FDA-Public Use
  Company Number: 163-20785-04040677

PATIENT
  Age: 63 Year
  Sex: Female

DRUGS (6)
  1. THALOMID [Suspect]
     Indication: MULTIPLE MYELOMA
     Dosage: 100 MG, QHS, ORAL; SEE IMAGE
     Route: 048
     Dates: start: 20031006, end: 20031102
  2. THALOMID [Suspect]
     Indication: MULTIPLE MYELOMA
     Dosage: 100 MG, QHS, ORAL; SEE IMAGE
     Route: 048
     Dates: start: 20031103, end: 20031116
  3. THALOMID [Suspect]
     Indication: MULTIPLE MYELOMA
     Dosage: 100 MG, QHS, ORAL; SEE IMAGE
     Route: 048
     Dates: start: 20031117, end: 20040113
  4. DECADRON [Suspect]
     Dosage: 20 MG, EVERY TWO WEEKS, 4 DAYS ON, 10 DAYS OFF
     Dates: start: 20030929, end: 20040108
  5. UNSPECIFIED HORMONE [Concomitant]
  6. EFFEXOR [Concomitant]

REACTIONS (14)
  - ASTHENIA [None]
  - BACK PAIN [None]
  - CONSTIPATION [None]
  - DEEP VEIN THROMBOSIS [None]
  - DRY SKIN [None]
  - FATIGUE [None]
  - INCREASED APPETITE [None]
  - INSOMNIA [None]
  - MALAISE [None]
  - NERVOUSNESS [None]
  - PULMONARY EMBOLISM [None]
  - SOMNOLENCE [None]
  - SWELLING [None]
  - WEIGHT INCREASED [None]
